FAERS Safety Report 5535274-7 (Version None)
Quarter: 2007Q4

REPORT INFORMATION
  Report Type: 
  Country: None (occurrence: None)
  Receive Date: 20071204
  Receipt Date: 20071120
  Transmission Date: 20080405
  Serious: Yes (Hospitalization, Other)
  Sender: FDA-Public Use
  Company Number: US-GDP-07403191

PATIENT
  Sex: Female

DRUGS (12)
  1. CLOBEX [Suspect]
     Indication: PSORIASIS
     Dosage: (1 DF BID TOPICAL)
     Route: 061
     Dates: start: 20071112, end: 20071113
  2. SIMVASTATIN [Concomitant]
  3. OMEPRAZOLE [Concomitant]
  4. ESTRADIOL [Concomitant]
  5. ASPRIN CARDIO [Concomitant]
  6. OXYBUTYNIN CHLORIDE [Concomitant]
  7. ATENOLOL [Concomitant]
  8. MICARDIS [Concomitant]
  9. OLEMSATAN MEDOXOMIL [Concomitant]
  10. NOVOLOG [Concomitant]
  11. INSULIN [Concomitant]
  12. SYNTHROID [Concomitant]

REACTIONS (2)
  - DRUG HYPERSENSITIVITY [None]
  - FOOD ALLERGY [None]
